FAERS Safety Report 18364020 (Version 1)
Quarter: 2020Q4

REPORT INFORMATION
  Report Type: Report from Study
  Country: None (occurrence: HU)
  Receive Date: 20201009
  Receipt Date: 20201009
  Transmission Date: 20210114
  Serious: Yes (Death)
  Sender: FDA-Public Use
  Company Number: HU-ABBVIE-20K-076-3601910-00

PATIENT
  Age: 63 Year
  Sex: Male

DRUGS (2)
  1. RITUXIMAB. [Concomitant]
     Active Substance: RITUXIMAB
     Indication: CHRONIC LYMPHOCYTIC LEUKAEMIA
     Dates: start: 20200805
  2. VENCLYXTO [Suspect]
     Active Substance: VENETOCLAX
     Indication: CHRONIC LYMPHOCYTIC LEUKAEMIA
     Route: 048
     Dates: start: 20200805

REACTIONS (3)
  - Superior vena cava syndrome [Fatal]
  - Neuroendocrine tumour [Fatal]
  - Cardiac failure [Fatal]

NARRATIVE: CASE EVENT DATE: 202009
